FAERS Safety Report 19891785 (Version 1)
Quarter: 2021Q3

REPORT INFORMATION
  Report Type: Spontaneous
  Country: US (occurrence: US)
  Receive Date: 20210928
  Receipt Date: 20210928
  Transmission Date: 20211014
  Serious: Yes (Hospitalization, Other)
  Sender: FDA-Public Use
  Company Number: US-TEVA-2021-US-1958662

PATIENT
  Age: 0 Year
  Sex: Male
  Weight: 1.6 kg

DRUGS (29)
  1. OXY [OXYCODONE] [Suspect]
     Active Substance: OXYCODONE
     Indication: PAIN
     Dosage: DAILY
     Route: 064
     Dates: start: 2006
  2. BETAMETHASONE. [Suspect]
     Active Substance: BETAMETHASONE
     Dosage: 12MG/2ML
     Route: 064
     Dates: start: 20161108
  3. ACETAMINOPHEN W/HYDROCODONE TEVA [Suspect]
     Active Substance: ACETAMINOPHEN\HYDROCODONE
     Indication: PAIN
     Dosage: 1?2 DOSAGE FORM A DAY
     Route: 064
     Dates: start: 201508
  4. FIORICET [Suspect]
     Active Substance: ACETAMINOPHEN\BUTALBITAL\CAFFEINE
     Indication: MIGRAINE
     Dosage: 2 DOSAGE FORMS DAILY;
     Route: 064
     Dates: start: 201506
  5. FIORICET [Suspect]
     Active Substance: ACETAMINOPHEN\BUTALBITAL\CAFFEINE
     Dosage: SUSPECT MEDICATION WAS TAKEN BY FATHER
     Route: 050
  6. NORCO [Suspect]
     Active Substance: ACETAMINOPHEN\HYDROCODONE BITARTRATE
     Indication: PAIN
     Route: 064
     Dates: start: 2008, end: 2016
  7. NEURONTIN [Suspect]
     Active Substance: GABAPENTIN
     Dosage: 800 MILLIGRAM DAILY;
     Route: 064
  8. PROMETHAZINE BLUEPOINT LAB [Suspect]
     Active Substance: PROMETHAZINE HYDROCHLORIDE
     Dosage: 1 DOSAGE FORMS DAILY;
     Route: 064
  9. VALIUM [Suspect]
     Active Substance: DIAZEPAM
     Indication: ANXIETY
     Dosage: SUSPECT MEDICATION WAS TAKEN BY FATHER
     Route: 050
  10. KLONOPIN [Suspect]
     Active Substance: CLONAZEPAM
     Dosage: SUSPECT MEDICATION WAS TAKEN BY FATHER
     Route: 050
  11. OXY [OXYCODONE] [Suspect]
     Active Substance: OXYCODONE
     Route: 063
     Dates: end: 2018
  12. GABAPENTIN ACTAVIS [Suspect]
     Active Substance: GABAPENTIN
     Route: 063
     Dates: start: 20150811
  13. CLONAZEPAM 1MG ACTAVIS [Suspect]
     Active Substance: CLONAZEPAM
     Dosage: 3 MILLIGRAM DAILY;
     Route: 064
     Dates: start: 201604
  14. BUTALBITOL/ACETAMINOPHEN/CAFFEINE MIKART [Suspect]
     Active Substance: ACETAMINOPHEN\BUTABARBITAL\CAFFEINE
     Dosage: 3 DOSAGE FORMS DAILY;
     Route: 064
     Dates: start: 201511
  15. KADIAN [Suspect]
     Active Substance: MORPHINE SULFATE
     Route: 064
  16. RANITIDINE AMNEAL [Suspect]
     Active Substance: RANITIDINE
     Dosage: 2 DOSAGE FORMS DAILY;
     Route: 064
     Dates: start: 201608
  17. ACETAMINOPHEN W/OXYCODONE [Suspect]
     Active Substance: ACETAMINOPHEN\OXYCODONE HYDROCHLORIDE
     Indication: PAIN
     Dosage: 5/325MG, ONCE EVERY 6 HOURS
     Route: 063
     Dates: start: 20161119
  18. CLONAZEPAM 1MG ACTAVIS [Suspect]
     Active Substance: CLONAZEPAM
     Route: 063
     Dates: start: 20161117
  19. BUPRENORPHINE HIKMA [Suspect]
     Active Substance: BUPRENORPHINE
     Dosage: 16 MILLIGRAM DAILY;
     Route: 064
     Dates: start: 201107
  20. KADIAN [Suspect]
     Active Substance: MORPHINE SULFATE
     Route: 063
     Dates: start: 20161117
  21. ZANTAC [Suspect]
     Active Substance: RANITIDINE HYDROCHLORIDE
     Dosage: 150 MILLIGRAM DAILY;
     Route: 063
     Dates: start: 20161108
  22. KLONOPIN [Suspect]
     Active Substance: CLONAZEPAM
     Route: 064
  23. BUPRENORPHINE HIKMA [Suspect]
     Active Substance: BUPRENORPHINE
     Dosage: 16 MILLIGRAM DAILY;
     Route: 063
     Dates: start: 201611
  24. OXY [OXYCODONE] [Suspect]
     Active Substance: OXYCODONE
     Dosage: SUSPECT MEDICATION WAS TAKEN BY FATHER
     Route: 050
  25. SUBUTEX [Suspect]
     Active Substance: BUPRENORPHINE HYDROCHLORIDE
     Indication: PAIN
     Dosage: 16 MILLIGRAM DAILY;
     Route: 064
     Dates: start: 201107
  26. GABAPENTIN ACTAVIS [Suspect]
     Active Substance: GABAPENTIN
     Route: 064
     Dates: start: 201607
  27. DIAZEPAM 10MG ACTAVIS [Suspect]
     Active Substance: DIAZEPAM
     Route: 064
     Dates: start: 201511
  28. SUBOXONE [Suspect]
     Active Substance: BUPRENORPHINE HYDROCHLORIDE\NALOXONE HYDROCHLORIDE
     Route: 064
     Dates: start: 201107
  29. XANAX [Suspect]
     Active Substance: ALPRAZOLAM
     Dosage: SUSPECT MEDICATION WAS TAKEN BY FATHER
     Route: 050

REACTIONS (21)
  - Drug withdrawal syndrome neonatal [Recovered/Resolved]
  - Premature baby [Unknown]
  - Sepsis [Recovered/Resolved]
  - Gastrooesophageal reflux disease [Recovered/Resolved]
  - Hyperbilirubinaemia [Recovered/Resolved]
  - Paternal exposure during pregnancy [Unknown]
  - Poor feeding infant [Recovered/Resolved]
  - Hearing disability [Unknown]
  - Low birth weight baby [Recovering/Resolving]
  - Bradycardia foetal [Recovered/Resolved]
  - Foetal hypokinesia [Recovered/Resolved]
  - Dyspnoea [Recovered/Resolved]
  - Eye disorder [Not Recovered/Not Resolved]
  - Exposure via breast milk [Unknown]
  - Tremor [Recovered/Resolved]
  - Foetal growth restriction [Recovering/Resolving]
  - Neonatal respiratory distress syndrome [Recovered/Resolved]
  - Infantile vomiting [Recovered/Resolved]
  - Foetal exposure during pregnancy [Unknown]
  - Crying [Recovered/Resolved]
  - Behaviour disorder [Unknown]

NARRATIVE: CASE EVENT DATE: 2016
